FAERS Safety Report 5603040-X (Version None)
Quarter: 2008Q1

REPORT INFORMATION
  Report Type: 
  Country: None (occurrence: None)
  Receive Date: 20080125
  Receipt Date: 20080122
  Transmission Date: 20080703
  Serious: Yes (Hospitalization)
  Sender: FDA-Public Use
  Company Number: AU-MERCK-0801AUS00164

PATIENT
  Age: 71 Year
  Sex: Female

DRUGS (2)
  1. FOSAMAX [Suspect]
     Route: 048
     Dates: start: 20010101, end: 20070501
  2. ASPIRIN [Concomitant]
     Indication: DEEP VEIN THROMBOSIS
     Route: 048

REACTIONS (1)
  - FEMUR FRACTURE [None]
